FAERS Safety Report 8557734-7 (Version None)
Quarter: 2012Q3

REPORT INFORMATION
  Report Type: 
  Country: None (occurrence: None)
  Receive Date: 20120801
  Receipt Date: 20120716
  Transmission Date: 20120928
  Serious: No
  Sender: FDA-Public Use
  Company Number: US-ASTRAZENECA-2012SE49948

PATIENT
  Age: 49 Year
  Sex: Female

DRUGS (6)
  1. ALBUTEROL SULFATE [Concomitant]
     Dosage: 2.5 MG/3 ML (0.083 %), INHALE 3 ML (2.5 MG) BY NEBULIZATION, EVERY 8 HOURS PRN
     Route: 055
  2. FLUTICASONE FUROATE [Concomitant]
     Dosage: 50 MCG, SPRAY 2 SPRAYS (100 MCG) IN EACH NOSTRIL ONCE DAILY
     Route: 045
  3. DALIRESP [Concomitant]
     Route: 048
  4. VENTOLIN [Concomitant]
     Dosage: 90 MCG, 2 PUFFS, EVERY 4-6 HOURS, PRN
     Route: 055
  5. NEXIUM [Suspect]
     Route: 048
  6. SYMBICORT [Suspect]
     Dosage: 160/4.5 MCG, 2 PUFFS, TWO TIMES A DAY (IN THE MORNING AND EVENING)
     Route: 055

REACTIONS (18)
  - ANXIETY [None]
  - DEPRESSION [None]
  - OTITIS MEDIA ACUTE [None]
  - SOCIAL PROBLEM [None]
  - ACUTE SINUSITIS [None]
  - BRONCHITIS CHRONIC [None]
  - SPINAL PAIN [None]
  - ASTHMA [None]
  - NICOTINE DEPENDENCE [None]
  - BRONCHITIS [None]
  - FATIGUE [None]
  - GASTROOESOPHAGEAL REFLUX DISEASE [None]
  - MALAISE [None]
  - PAIN IN EXTREMITY [None]
  - MAJOR DEPRESSION [None]
  - UPPER RESPIRATORY TRACT INFECTION [None]
  - DEVELOPMENTAL DELAY [None]
  - BACK PAIN [None]
